FAERS Safety Report 19488239 (Version 1)
Quarter: 2021Q3

REPORT INFORMATION
  Report Type: Spontaneous
  Country: US (occurrence: US)
  Receive Date: 20210702
  Receipt Date: 20210702
  Transmission Date: 20211014
  Serious: Yes (Other)
  Sender: FDA-Public Use
  Company Number: US-ASTRAZENECA-2021A587229

PATIENT
  Sex: Female

DRUGS (25)
  1. NEXIUM [Suspect]
     Active Substance: ESOMEPRAZOLE MAGNESIUM
     Indication: NEOPLASM MALIGNANT
     Dosage: 40 MG
     Route: 048
     Dates: start: 20111026
  2. PROTONIX [Suspect]
     Active Substance: PANTOPRAZOLE SODIUM
     Indication: PRODUCT USED FOR UNKNOWN INDICATION
     Dosage: UNK
     Route: 065
  3. PROTONIX [Suspect]
     Active Substance: PANTOPRAZOLE SODIUM
     Indication: NEOPLASM MALIGNANT
     Dosage: UNK GENERIC
     Route: 065
     Dates: start: 20140902, end: 20151207
  4. NEXIUM [Suspect]
     Active Substance: ESOMEPRAZOLE MAGNESIUM
     Indication: PRODUCT USED FOR UNKNOWN INDICATION
     Dosage: 40 MG
     Route: 048
     Dates: start: 20111026
  5. PRILOSEC [Suspect]
     Active Substance: OMEPRAZOLE MAGNESIUM
     Indication: CROHN^S DISEASE
     Dosage: 20 MG, QD GENERIC
     Route: 065
     Dates: start: 2008
  6. NEXIUM [Suspect]
     Active Substance: ESOMEPRAZOLE MAGNESIUM
     Indication: CROHN^S DISEASE
     Dosage: 40 MG
     Route: 048
     Dates: start: 20111026
  7. PREVACID [Suspect]
     Active Substance: LANSOPRAZOLE
     Indication: NEOPLASM MALIGNANT
     Dosage: 20 MG
     Route: 065
  8. PROTONIX [Suspect]
     Active Substance: PANTOPRAZOLE SODIUM
     Indication: CROHN^S DISEASE
     Dosage: UNK GENERIC
     Route: 065
     Dates: start: 20140902, end: 20151207
  9. NEXIUM [Suspect]
     Active Substance: ESOMEPRAZOLE MAGNESIUM
     Indication: NEOPLASM MALIGNANT
     Dosage: 40 MG GENERIC
     Route: 065
  10. PRILOSEC [Suspect]
     Active Substance: OMEPRAZOLE MAGNESIUM
     Indication: PRODUCT USED FOR UNKNOWN INDICATION
     Dosage: 20 MG, QD GENERIC
     Route: 065
     Dates: start: 2008
  11. PRILOSEC OTC [Suspect]
     Active Substance: OMEPRAZOLE MAGNESIUM
     Indication: PRODUCT USED FOR UNKNOWN INDICATION
     Dosage: UNK
     Route: 065
  12. PROTONIX [Suspect]
     Active Substance: PANTOPRAZOLE SODIUM
     Indication: CROHN^S DISEASE
     Dosage: UNK
     Route: 065
  13. PROTONIX [Suspect]
     Active Substance: PANTOPRAZOLE SODIUM
     Indication: PRODUCT USED FOR UNKNOWN INDICATION
     Dosage: UNK GENERIC
     Route: 065
     Dates: start: 2011, end: 2017
  14. PROTONIX [Suspect]
     Active Substance: PANTOPRAZOLE SODIUM
     Indication: PRODUCT USED FOR UNKNOWN INDICATION
     Dosage: 40 MG
     Route: 065
     Dates: start: 20150930
  15. NEXIUM 24HR [Suspect]
     Active Substance: ESOMEPRAZOLE MAGNESIUM
     Indication: PRODUCT USED FOR UNKNOWN INDICATION
     Dosage: UNK
     Route: 065
  16. PROTONIX [Suspect]
     Active Substance: PANTOPRAZOLE SODIUM
     Indication: NEOPLASM MALIGNANT
     Dosage: UNK
     Route: 065
  17. PROTONIX [Suspect]
     Active Substance: PANTOPRAZOLE SODIUM
     Indication: NEOPLASM MALIGNANT
     Dosage: UNK GENERIC
     Route: 065
     Dates: start: 2011, end: 2017
  18. NEXIUM [Suspect]
     Active Substance: ESOMEPRAZOLE MAGNESIUM
     Indication: PRODUCT USED FOR UNKNOWN INDICATION
     Dosage: 40 MG GENERIC
     Route: 065
  19. PRILOSEC [Suspect]
     Active Substance: OMEPRAZOLE MAGNESIUM
     Indication: CROHN^S DISEASE
     Dosage: 20 MG, QD
     Route: 065
     Dates: start: 20150104
  20. PROTONIX [Suspect]
     Active Substance: PANTOPRAZOLE SODIUM
     Indication: PRODUCT USED FOR UNKNOWN INDICATION
     Dosage: UNK GENERIC
     Route: 065
     Dates: start: 20140902, end: 20151207
  21. NEXIUM [Suspect]
     Active Substance: ESOMEPRAZOLE MAGNESIUM
     Indication: CROHN^S DISEASE
     Dosage: 40 MG GENERIC
     Route: 065
  22. PRILOSEC [Suspect]
     Active Substance: OMEPRAZOLE MAGNESIUM
     Indication: PRODUCT USED FOR UNKNOWN INDICATION
     Dosage: 20 MG, QD
     Route: 065
     Dates: start: 20150104
  23. PRILOSEC OTC [Suspect]
     Active Substance: OMEPRAZOLE MAGNESIUM
     Indication: PRODUCT USED FOR UNKNOWN INDICATION
     Dosage: UNK GENERIC
     Route: 065
     Dates: start: 20140301, end: 20150401
  24. PREVACID [Suspect]
     Active Substance: LANSOPRAZOLE
     Indication: CROHN^S DISEASE
     Dosage: 20 MG
     Route: 065
  25. PROTONIX [Suspect]
     Active Substance: PANTOPRAZOLE SODIUM
     Indication: CROHN^S DISEASE
     Dosage: UNK GENERIC
     Route: 065
     Dates: start: 2011, end: 2017

REACTIONS (27)
  - Gastrectomy [Unknown]
  - Gastric cancer [Unknown]
  - Stomach mass [Unknown]
  - Chronic gastritis [Unknown]
  - Gastrooesophageal reflux disease [Unknown]
  - Intestinal obstruction [Unknown]
  - Diarrhoea [Unknown]
  - Gastroenterostomy [Unknown]
  - Anal incontinence [Unknown]
  - Abdominal pain [Unknown]
  - Gastritis [Unknown]
  - Bowel movement irregularity [Unknown]
  - Nausea [Unknown]
  - Dysphagia [Unknown]
  - Gastrointestinal haemorrhage [Unknown]
  - Gastrointestinal wall thickening [Unknown]
  - Gastric neoplasm [Unknown]
  - Renal injury [Unknown]
  - Benign gastric neoplasm [Unknown]
  - Vomiting [Unknown]
  - Adenocarcinoma gastric [Not Recovered/Not Resolved]
  - Gastric ulcer [Unknown]
  - Abdominal pain upper [Unknown]
  - Gastric disorder [Unknown]
  - Oesophagitis [Unknown]
  - Haemorrhoids [Unknown]
  - Lymphadenectomy [Unknown]
